FAERS Safety Report 7150944-5 (Version None)
Quarter: 2010Q4

REPORT INFORMATION
  Report Type: 
  Country: None (occurrence: None)
  Receive Date: 20101210
  Receipt Date: 20101201
  Transmission Date: 20110411
  Serious: Yes (Death)
  Sender: FDA-Public Use
  Company Number: A0765924A

PATIENT
  Age: 47 Year
  Sex: Male
  Weight: 105.9 kg

DRUGS (2)
  1. AVANDIA [Suspect]
     Indication: DIABETES MELLITUS
     Dosage: 8MG PER DAY
     Route: 048
     Dates: start: 20030711, end: 20070318
  2. DILTIAZEM [Concomitant]

REACTIONS (1)
  - MYOCARDIAL INFARCTION [None]
